FAERS Safety Report 14317801 (Version 3)
Quarter: 2018Q1

REPORT INFORMATION
  Report Type: Spontaneous
  Country: FR (occurrence: FR)
  Receive Date: 20171222
  Receipt Date: 20180110
  Transmission Date: 20180509
  Serious: Yes (Other)
  Sender: FDA-Public Use
  Company Number: FR-009507513-1712FRA010862

PATIENT
  Sex: Male
  Weight: 85 kg

DRUGS (8)
  1. BISOPROLOL [Concomitant]
     Active Substance: BISOPROLOL
     Dosage: 2 DF, QD, STRENGTH : 5 (UNITS NOT PROVIDED)
  2. ALDACTONE [Concomitant]
     Active Substance: SPIRONOLACTONE
     Dosage: 1 DF, QD, STRENGTH :2.5 (UNITS NOT PROVIDED)
  3. COUMADINE [Concomitant]
     Active Substance: WARFARIN SODIUM
     Dosage: ACCORDING TO INR
  4. ATORVASTATIN [Concomitant]
     Active Substance: ATORVASTATIN
     Dosage: 1 DF, QD, STRENGTH: 40 (UNITS NOT PROVIDED)
  5. PERINDOPRIL [Concomitant]
     Active Substance: PERINDOPRIL
     Dosage: 1 DF, QD
  6. JANUVIA [Suspect]
     Active Substance: SITAGLIPTIN PHOSPHATE
     Indication: DIABETES MELLITUS
     Dosage: 2 TABLETS DAILY
     Route: 048
  7. MODURETIC 5-50 [Concomitant]
     Active Substance: AMILORIDE HYDROCHLORIDE\HYDROCHLOROTHIAZIDE
     Dosage: 1 DF, QD
  8. JANUVIA [Suspect]
     Active Substance: SITAGLIPTIN PHOSPHATE
     Dosage: 2 TABLETS AT NOON AND 1 TABLET IN THE EVENING
     Route: 048
     Dates: start: 20171211

REACTIONS (3)
  - Diabetes mellitus inadequate control [Unknown]
  - Off label use [Unknown]
  - Drug prescribing error [Unknown]
